FAERS Safety Report 16333595 (Version 1)
Quarter: 2019Q2

REPORT INFORMATION
  Report Type: Spontaneous
  Country: FR (occurrence: FR)
  Receive Date: 20190520
  Receipt Date: 20190520
  Transmission Date: 20190711
  Serious: Yes (Other)
  Sender: FDA-Public Use
  Company Number: FR-GUERBET-FR-20190007

PATIENT
  Age: 47 Year
  Sex: Female
  Weight: 56 kg

DRUGS (12)
  1. DURVALUMAB. [Suspect]
     Active Substance: DURVALUMAB
     Dosage: EVERY 2 WEEKS
     Route: 042
     Dates: start: 20180807
  2. DURVALUMAB. [Suspect]
     Active Substance: DURVALUMAB
     Dosage: EVERY 2 WEEKS
     Route: 042
     Dates: start: 20180904
  3. DURVALUMAB. [Suspect]
     Active Substance: DURVALUMAB
     Dosage: EVERY 2 WEEKS
     Route: 042
     Dates: start: 20181127
  4. DURVALUMAB. [Suspect]
     Active Substance: DURVALUMAB
     Dosage: EVERY 2 WEEKS
     Route: 042
     Dates: start: 20180821
  5. DURVALUMAB. [Suspect]
     Active Substance: DURVALUMAB
     Dosage: EVERY 2 WEEKS
     Route: 042
     Dates: start: 20181002, end: 20181016
  6. DURVALUMAB. [Suspect]
     Active Substance: DURVALUMAB
     Dosage: EVERY 2 WEEKS
     Route: 042
     Dates: start: 20181030
  7. DURVALUMAB. [Suspect]
     Active Substance: DURVALUMAB
     Indication: NON-SMALL CELL LUNG CANCER STAGE III
     Dosage: EVERY 2 WEEKS
     Route: 042
     Dates: start: 20180724
  8. OPTIJECT 350 [Suspect]
     Active Substance: IOVERSOL
     Indication: COMPUTERISED TOMOGRAM
     Route: 042
     Dates: start: 20180927, end: 20180927
  9. DURVALUMAB. [Suspect]
     Active Substance: DURVALUMAB
     Dosage: EVERY 2 WEEKS
     Route: 042
     Dates: start: 20180918
  10. ASPEGIC [ACETYLSALICYLIC ACID] [Concomitant]
     Active Substance: ASPIRIN
     Indication: ARTERIAL STENOSIS
     Route: 048
     Dates: start: 201801
  11. DURVALUMAB. [Suspect]
     Active Substance: DURVALUMAB
     Dosage: EVERY 2 WEEKS
     Route: 042
     Dates: start: 20181113
  12. MIRENA [Concomitant]
     Active Substance: LEVONORGESTREL
     Indication: INTRAUTERINE CONTRACEPTION
     Route: 015
     Dates: start: 201408

REACTIONS (7)
  - Thyroxine free abnormal [Not Recovered/Not Resolved]
  - Hyperthyroidism [Not Recovered/Not Resolved]
  - Pulmonary mass [Unknown]
  - Tachycardia [Unknown]
  - Disease progression [Unknown]
  - Neuralgia [Unknown]
  - Hypokalaemia [Recovered/Resolved]

NARRATIVE: CASE EVENT DATE: 20180806
